FAERS Safety Report 16772161 (Version 1)
Quarter: 2019Q3

REPORT INFORMATION
  Report Type: Spontaneous
  Country: US (occurrence: US)
  Receive Date: 20190715
  Receipt Date: 20190715
  Transmission Date: 20191005
  Serious: Yes (Hospitalization)
  Sender: FDA-Public Use
  Company Number: None

PATIENT
  Sex: Female

DRUGS (10)
  1. DEXAMETHASON [Concomitant]
     Active Substance: DEXAMETHASONE
  2. OMEPRAZOLE. [Suspect]
     Active Substance: OMEPRAZOLE
  3. ZENPEP [Concomitant]
     Active Substance: PANCRELIPASE AMYLASE\PANCRELIPASE LIPASE\PANCRELIPASE PROTEASE
  4. CAPECITABINE 500MG TAB [Suspect]
     Active Substance: CAPECITABINE
     Dosage: ?          OTHER FREQUENCY:EVERY EVENING
  5. DRONABINOL. [Concomitant]
     Active Substance: DRONABINOL
  6. SPIRONOLACT [Concomitant]
     Active Substance: SPIRONOLACTONE
  7. LOPERAMIDE [Concomitant]
     Active Substance: LOPERAMIDE
  8. POT CHLORIDE [Concomitant]
     Active Substance: POTASSIUM CHLORIDE
  9. CAPECITABINE 500MG TAB [Suspect]
     Active Substance: CAPECITABINE
     Dosage: EVERY MORNING
     Route: 048
     Dates: start: 20190515
  10. TRIAMCINOLN CRE [Concomitant]

REACTIONS (2)
  - Pyrexia [None]
  - Therapy cessation [None]
